FAERS Safety Report 11431463 (Version 1)
Quarter: 2015Q3

REPORT INFORMATION
  Report Type: Spontaneous
  Country: US (occurrence: US)
  Receive Date: 20150828
  Receipt Date: 20150828
  Transmission Date: 20151125
  Serious: Yes (Other)
  Sender: FDA-Public Use
  Company Number: US-AMGEN-USASP2015087020

PATIENT
  Age: 9 Year
  Sex: Male

DRUGS (1)
  1. ENBREL [Suspect]
     Active Substance: ETANERCEPT
     Indication: JUVENILE IDIOPATHIC ARTHRITIS
     Dosage: 50 MG, QWK
     Route: 058

REACTIONS (6)
  - Eczema [Unknown]
  - Fatigue [Unknown]
  - Anaphylactic reaction [Unknown]
  - Hyperaesthesia [Unknown]
  - Mouth swelling [Unknown]
  - Wheezing [Unknown]

NARRATIVE: CASE EVENT DATE: 20150821
